FAERS Safety Report 9284467 (Version 1)
Quarter: 2013Q2

REPORT INFORMATION
  Report Type: Spontaneous
  Country: US (occurrence: US)
  Receive Date: 20130510
  Receipt Date: 20130510
  Transmission Date: 20140414
  Serious: No
  Sender: FDA-Public Use
  Company Number: US-009507513-1305USA002292

PATIENT
  Sex: Male

DRUGS (1)
  1. DULERA [Suspect]
     Dosage: 1 PUFF, BID
     Route: 055
     Dates: start: 20130503

REACTIONS (4)
  - Product taste abnormal [Unknown]
  - Product quality issue [Unknown]
  - Underdose [Unknown]
  - No adverse event [Unknown]
